FAERS Safety Report 9054373 (Version 1)
Quarter: 2013Q1

REPORT INFORMATION
  Report Type: Spontaneous
  Country: US (occurrence: US)
  Receive Date: 20130208
  Receipt Date: 20130208
  Transmission Date: 20140127
  Serious: No
  Sender: FDA-Public Use
  Company Number: US-GLAXOSMITHKLINE-A0961604A

PATIENT
  Age: 50 Year
  Sex: Female

DRUGS (4)
  1. PAXIL [Suspect]
     Indication: PANIC ATTACK
     Dosage: 25MG PER DAY
     Route: 048
     Dates: start: 2002
  2. LEVOTHYROXIN [Concomitant]
  3. LOVAZA [Concomitant]
  4. MULTIVITAMIN [Concomitant]

REACTIONS (1)
  - Panic attack [Unknown]
